FAERS Safety Report 7083381-2 (Version None)
Quarter: 2010Q4

REPORT INFORMATION
  Report Type: 
  Country: None (occurrence: None)
  Receive Date: 20101027
  Receipt Date: 20101019
  Transmission Date: 20110411
  Serious: Yes (Other)
  Sender: FDA-Public Use
  Company Number: IN-1183622

PATIENT
  Age: 44 Year
  Sex: Male

DRUGS (1)
  1. NEVANAC [Suspect]
     Indication: POSTOPERATIVE CARE
     Dosage: TID OPHTHALMIC
     Route: 047
     Dates: start: 20100729, end: 20100830

REACTIONS (3)
  - BLINDNESS [None]
  - CORNEAL THINNING [None]
  - ULCERATIVE KERATITIS [None]
